FAERS Safety Report 14499172 (Version 1)
Quarter: 2018Q1

REPORT INFORMATION
  Report Type: Spontaneous
  Country: US (occurrence: US)
  Receive Date: 20180207
  Receipt Date: 20180207
  Transmission Date: 20180509
  Serious: No
  Sender: FDA-Public Use
  Company Number: US-JAZZ-2017-US-003633

PATIENT
  Sex: Female

DRUGS (12)
  1. PRIALT [Suspect]
     Active Substance: ZICONOTIDE ACETATE
     Indication: PAIN
     Dosage: 0.311 ?G, QH
     Route: 037
     Dates: start: 20131024, end: 201310
  2. BUPIVACAINE. [Suspect]
     Active Substance: BUPIVACAINE
     Dosage: 0.195 MG, QH
     Route: 037
     Dates: start: 20131028
  3. BUPIVACAINE. [Suspect]
     Active Substance: BUPIVACAINE
     Dosage: 0.269 MG, QH
     Route: 037
     Dates: start: 20140826, end: 2014
  4. DILAUDID [Suspect]
     Active Substance: HYDROMORPHONE HYDROCHLORIDE
     Dosage: 0.292 MG, QH
     Route: 037
     Dates: start: 20131028
  5. DILAUDID [Suspect]
     Active Substance: HYDROMORPHONE HYDROCHLORIDE
     Dosage: 0.404 MG, QH
     Route: 037
     Dates: start: 20140826, end: 2014
  6. BUPIVACAINE. [Suspect]
     Active Substance: BUPIVACAINE
     Indication: PRODUCT USED FOR UNKNOWN INDICATION
     Dosage: 0.194 MG, QH
     Route: 037
     Dates: start: 20131024, end: 201310
  7. PRIALT [Suspect]
     Active Substance: ZICONOTIDE ACETATE
     Dosage: 0.097 ?G, QH
     Route: 037
     Dates: start: 20140826, end: 2014
  8. BUPIVACAINE. [Suspect]
     Active Substance: BUPIVACAINE
     Dosage: 0.269 MG, QH
     Route: 037
     Dates: start: 20140915
  9. DILAUDID [Suspect]
     Active Substance: HYDROMORPHONE HYDROCHLORIDE
     Indication: PRODUCT USED FOR UNKNOWN INDICATION
     Dosage: 0.292 MG, QH
     Route: 037
     Dates: start: 20131024, end: 201310
  10. DILAUDID [Suspect]
     Active Substance: HYDROMORPHONE HYDROCHLORIDE
     Dosage: 0.404 MG, QH
     Route: 037
     Dates: start: 20140915
  11. PRIALT [Suspect]
     Active Substance: ZICONOTIDE ACETATE
     Dosage: 0.097 ?G, QH
     Route: 037
     Dates: start: 20140915
  12. PRIALT [Suspect]
     Active Substance: ZICONOTIDE ACETATE
     Dosage: 0.062 ?G, QH
     Route: 037
     Dates: start: 20131028

REACTIONS (2)
  - Gait disturbance [Recovered/Resolved]
  - Muscular weakness [Recovered/Resolved]
